FAERS Safety Report 9555520 (Version 1)
Quarter: 2013Q3

REPORT INFORMATION
  Report Type: Spontaneous
  Country: US (occurrence: None)
  Receive Date: 20130904
  Receipt Date: 20130904
  Transmission Date: 20140515
  Serious: Yes (Hospitalization)
  Sender: FDA-Public Use
  Company Number: A-NJ2012-71667

PATIENT
  Age: 41 Year
  Sex: Female

DRUGS (4)
  1. VELETRI [Suspect]
     Indication: PULMONARY ARTERIAL HYPERTENSION
     Dosage: 35 NG/KG, PER MIN, IV DRIP
     Route: 041
     Dates: start: 201106
  2. REVATIO (SILDENAFIL CITRATE) [Concomitant]
  3. COUMADIN (WARFARIN SODIUM) [Concomitant]
  4. ALDACTONE (SPIRONOLACTONE) [Concomitant]

REACTIONS (5)
  - Medical device complication [None]
  - Dyspnoea [None]
  - Palpitations [None]
  - Presyncope [None]
  - Hyperhidrosis [None]
